FAERS Safety Report 14955210 (Version 2)
Quarter: 2021Q3

REPORT INFORMATION
  Report Type: Other
  Country: JP (occurrence: JP)
  Receive Date: 20180531
  Receipt Date: 20210818
  Transmission Date: 20211014
  Serious: Yes (Death)
  Sender: FDA-Public Use
  Company Number: JP-ROCHE-2130801

PATIENT
  Age: 27 Year
  Sex: Female
  Weight: 37.3 kg

DRUGS (3)
  1. ATARAX?P [Concomitant]
     Active Substance: HYDROXYZINE HYDROCHLORIDE
     Indication: PROPHYLAXIS
     Route: 048
     Dates: start: 20071006, end: 20071006
  2. RITUXIMAB. [Suspect]
     Active Substance: RITUXIMAB
     Indication: PROPHYLAXIS AGAINST TRANSPLANT REJECTION
     Route: 041
     Dates: start: 20071006, end: 20071006
  3. RITUXIMAB. [Suspect]
     Active Substance: RITUXIMAB
     Route: 041
     Dates: start: 20071014, end: 20071014

REACTIONS (2)
  - Off label use [Fatal]
  - Pancreatitis [Fatal]

NARRATIVE: CASE EVENT DATE: 20161110
